FAERS Safety Report 9923089 (Version 1)
Quarter: 2014Q1

REPORT INFORMATION
  Report Type: Spontaneous
  Country: US (occurrence: US)
  Receive Date: 20140225
  Receipt Date: 20140225
  Transmission Date: 20141002
  Serious: No
  Sender: FDA-Public Use
  Company Number: US-AMGEN-USASP2013069187

PATIENT
  Age: 47 Year
  Sex: Female

DRUGS (8)
  1. ENBREL [Suspect]
     Indication: PRODUCT USED FOR UNKNOWN INDICATION
     Dosage: 50 MG, QWK
     Route: 058
  2. METHOTREXATE [Concomitant]
     Dosage: 2.5 MG, UNK
  3. FOLIC ACID [Concomitant]
     Dosage: UNK
  4. OMEPRAZOLE [Concomitant]
     Dosage: 20 MG, UNK
  5. GLYBURIDE [Concomitant]
     Dosage: 1.25 MG, UNK
  6. ENALAPRIL [Concomitant]
     Dosage: 20 MG, UNK
  7. SIMVASTATIN [Concomitant]
     Dosage: 10 MG, UNK
  8. B COMPLEX (B50) [Concomitant]
     Dosage: UNK

REACTIONS (2)
  - Pain [Unknown]
  - Contusion [Unknown]
